FAERS Safety Report 24566813 (Version 1)
Quarter: 2024Q4

REPORT INFORMATION
  Report Type: Spontaneous
  Country: US (occurrence: US)
  Receive Date: 20241030
  Receipt Date: 20241030
  Transmission Date: 20250115
  Serious: Yes (Hospitalization)
  Sender: AMARIN
  Company Number: US-Amarin Pharma  Inc-2024AMR000520

PATIENT
  Age: 75 Year
  Sex: Female

DRUGS (1)
  1. VASCEPA [Suspect]
     Active Substance: ICOSAPENT ETHYL
     Indication: Product used for unknown indication
     Dates: start: 202401, end: 202401

REACTIONS (2)
  - Cardiac disorder [Unknown]
  - Product size issue [Unknown]

NARRATIVE: CASE EVENT DATE: 20240101
